FAERS Safety Report 6655626-1 (Version None)
Quarter: 2010Q1

REPORT INFORMATION
  Report Type: 
  Country: None (occurrence: None)
  Receive Date: 20100329
  Receipt Date: 20100317
  Transmission Date: 20100710
  Serious: Yes (Disabling, Other)
  Sender: FDA-Public Use
  Company Number: PT-PFIZER INC-2010010902

PATIENT
  Age: 51 Year
  Sex: Female
  Weight: 78 kg

DRUGS (1)
  1. AROMASIN [Suspect]
     Indication: BREAST CANCER STAGE II
     Dosage: 25 MG, 1X/DAY
     Route: 048
     Dates: start: 20091021, end: 20100127

REACTIONS (5)
  - ARTHRALGIA [None]
  - DEPRESSED MOOD [None]
  - HIRSUTISM [None]
  - HYPOAESTHESIA [None]
  - JOINT STIFFNESS [None]
